FAERS Safety Report 10211648 (Version 2)
Quarter: 2014Q3

REPORT INFORMATION
  Report Type: Spontaneous
  Country: US (occurrence: US)
  Receive Date: 20140602
  Receipt Date: 20140909
  Transmission Date: 20150326
  Serious: No
  Sender: FDA-Public Use
  Company Number: US-GLAXOSMITHKLINE-A1062879A

PATIENT
  Age: 41 Year
  Sex: Female

DRUGS (4)
  1. PREDNISONE. [Concomitant]
     Active Substance: PREDNISONE
     Route: 048
  2. FABIOR [Suspect]
     Active Substance: TAZAROTENE
     Indication: ALOPECIA AREATA
     Dosage: .25CUP PER DAY
     Route: 061
     Dates: start: 20140114, end: 20140219
  3. BIRTH CONTROL PILLS [Concomitant]
     Active Substance: UNSPECIFIED INGREDIENT
  4. CLOBETASOL [Suspect]
     Active Substance: CLOBETASOL
     Indication: ALOPECIA AREATA
     Route: 061
     Dates: start: 20140217

REACTIONS (10)
  - Pruritus [Unknown]
  - Erythema [Unknown]
  - Burning sensation [Unknown]
  - Product quality issue [Unknown]
  - Skin irritation [Recovering/Resolving]
  - Dry skin [Unknown]
  - Application site pain [Unknown]
  - Drug ineffective [Unknown]
  - Skin exfoliation [Unknown]
  - Pain [Unknown]

NARRATIVE: CASE EVENT DATE: 20140116
